FAERS Safety Report 7555108-9 (Version None)
Quarter: 2011Q2

REPORT INFORMATION
  Report Type: 
  Country: None (occurrence: None)
  Receive Date: 20110617
  Receipt Date: 20110616
  Transmission Date: 20111010
  Serious: Yes (Hospitalization)
  Sender: FDA-Public Use
  Company Number: US-UCBSA-035541

PATIENT
  Sex: Male

DRUGS (11)
  1. GABAPENTIN [Concomitant]
     Route: 048
  2. MIRALAX [Concomitant]
     Indication: CROHN'S DISEASE
  3. ENTOCORT EC [Concomitant]
     Route: 048
  4. FINASTERIDE [Concomitant]
     Route: 048
  5. LUPRON [Concomitant]
     Route: 030
  6. METOPROLOL TARTRATE [Concomitant]
     Route: 048
  7. UROXATRAL [Concomitant]
     Route: 048
  8. PREDNISONE [Concomitant]
     Route: 048
  9. CIMZIA [Suspect]
     Indication: CROHN'S DISEASE
     Route: 058
     Dates: start: 20090101
  10. OMEPRAZOLE [Concomitant]
     Route: 048
  11. ZOMETA [Concomitant]
     Route: 042

REACTIONS (1)
  - PNEUMONIA [None]
